FAERS Safety Report 26054059 (Version 1)
Quarter: 2025Q4

REPORT INFORMATION
  Report Type: Spontaneous
  Country: RS (occurrence: RS)
  Receive Date: 20251117
  Receipt Date: 20251117
  Transmission Date: 20260118
  Serious: Yes (Other)
  Sender: PFIZER
  Company Number: RS-TAKEDA-2025TUS101035

PATIENT
  Sex: Female

DRUGS (3)
  1. CONTROLOC [Suspect]
     Active Substance: PANTOPRAZOLE SODIUM
     Indication: Optic neuritis
     Dosage: 40 MILLIGRAM, QD
     Route: 042
     Dates: start: 20251027, end: 20251030
  2. METHYLPREDNISOLONE SODIUM SUCCINATE [Suspect]
     Active Substance: METHYLPREDNISOLONE SODIUM SUCCINATE
     Indication: Optic neuritis
     Dosage: 1 GRAM, QD
     Route: 042
     Dates: start: 20251027, end: 20251030
  3. POTASSIUM [Concomitant]
     Active Substance: POTASSIUM
     Indication: Optic neuritis
     Dosage: UNK

REACTIONS (4)
  - Sinus bradycardia [Recovered/Resolved]
  - Electrocardiogram QT prolonged [Recovered/Resolved]
  - Intermenstrual bleeding [Recovering/Resolving]
  - Polymenorrhoea [Recovering/Resolving]

NARRATIVE: CASE EVENT DATE: 20251030
